FAERS Safety Report 5942121-8 (Version None)
Quarter: 2008Q4

REPORT INFORMATION
  Report Type: 
  Country: None (occurrence: None)
  Receive Date: 20081105
  Receipt Date: 20081029
  Transmission Date: 20090506
  Serious: Yes (Life-Threatening)
  Sender: FDA-Public Use
  Company Number: CA-GENENTECH-270664

PATIENT
  Sex: Female

DRUGS (2)
  1. EFALIZUMAB [Suspect]
     Indication: PSORIASIS
     Dosage: UNK
     Dates: end: 20080812
  2. LEVOTHYROXINE SODIUM [Concomitant]
     Indication: HYPOTHYROIDISM
     Dosage: UNK MG, QD
     Route: 048
     Dates: start: 20061229

REACTIONS (2)
  - ABDOMINAL PAIN [None]
  - METASTASES TO LIVER [None]
